FAERS Safety Report 8359081-5 (Version None)
Quarter: 2012Q2

REPORT INFORMATION
  Report Type: 
  Country: None (occurrence: None)
  Receive Date: 20120515
  Receipt Date: 20081001
  Transmission Date: 20120825
  Serious: No
  Sender: FDA-Public Use
  Company Number: 2008BI023159

PATIENT
  Age: 39 Year
  Sex: Female

DRUGS (1)
  1. TYSABRI [Suspect]
     Indication: MULTIPLE SCLEROSIS
     Route: 042
     Dates: start: 20070901

REACTIONS (9)
  - VEIN PAIN [None]
  - FOOT FRACTURE [None]
  - FRUSTRATION [None]
  - OSTEOPOROSIS [None]
  - MEMORY IMPAIRMENT [None]
  - HEADACHE [None]
  - RIB FRACTURE [None]
  - HYPOTENSION [None]
  - ANGER [None]
